FAERS Safety Report 7434653-0 (Version None)
Quarter: 2011Q2

REPORT INFORMATION
  Report Type: 
  Country: None (occurrence: None)
  Receive Date: 20110421
  Receipt Date: 20110421
  Transmission Date: 20111010
  Serious: Yes (Other)
  Sender: FDA-Public Use
  Company Number: None

PATIENT
  Age: 67 Year
  Sex: Male
  Weight: 70 kg

DRUGS (2)
  1. SERTRALINE [Suspect]
     Indication: DEPRESSION
     Dosage: 150 MG EVERY DAY
     Dates: start: 20100323, end: 20101019
  2. DOXEPIN [Suspect]
     Indication: SOMNOLENCE
     Dates: start: 20070803, end: 20101028

REACTIONS (4)
  - TARDIVE DYSKINESIA [None]
  - MEMORY IMPAIRMENT [None]
  - GAIT DISTURBANCE [None]
  - HEADACHE [None]
